FAERS Safety Report 7069469-0 (Version None)
Quarter: 2010Q4

REPORT INFORMATION
  Report Type: 
  Country: None (occurrence: None)
  Receive Date: 20101028
  Receipt Date: 20100325
  Transmission Date: 20110411
  Serious: Yes (Hospitalization, Other)
  Sender: FDA-Public Use
  Company Number: US-WYE-H08656509

PATIENT
  Age: 70 Year
  Sex: Female

DRUGS (6)
  1. AMIODARONE [Suspect]
     Indication: ATRIAL FIBRILLATION
  2. AMIODARONE [Suspect]
  3. ACETAMINOPHEN [Concomitant]
     Dosage: 325 MG
  4. METOPROLOL [Concomitant]
  5. ACETYLSALICYLIC ACID [Concomitant]
  6. FUROSEMIDE [Concomitant]

REACTIONS (3)
  - DRUG EFFECT DECREASED [None]
  - INTERSTITIAL LUNG DISEASE [None]
  - PLEURAL EFFUSION [None]
